FAERS Safety Report 19194220 (Version 2)
Quarter: 2021Q2

REPORT INFORMATION
  Report Type: Report from Study
  Country: US (occurrence: US)
  Receive Date: 20210429
  Receipt Date: 20210601
  Transmission Date: 20210717
  Serious: Yes (Other)
  Sender: FDA-Public Use
  Company Number: NVSC2021US088871

PATIENT
  Sex: Female

DRUGS (1)
  1. PROMACTA [Suspect]
     Active Substance: ELTROMBOPAG OLAMINE
     Indication: PRODUCT USED FOR UNKNOWN INDICATION
     Dosage: UNK
     Route: 048

REACTIONS (12)
  - Internal haemorrhage [Unknown]
  - Swelling [Unknown]
  - Insomnia [Unknown]
  - Bowel movement irregularity [Unknown]
  - Pruritus [Unknown]
  - Petechiae [Unknown]
  - Platelet count increased [Unknown]
  - Alopecia [Unknown]
  - Fatigue [Unknown]
  - Joint swelling [Unknown]
  - Product dispensing error [Unknown]
  - Back pain [Unknown]
